FAERS Safety Report 5430085-5 (Version None)
Quarter: 2007Q3

REPORT INFORMATION
  Report Type: 
  Country: None (occurrence: None)
  Receive Date: 20070829
  Receipt Date: 20070821
  Transmission Date: 20080115
  Serious: Yes (Other)
  Sender: FDA-Public Use
  Company Number: JP-PFIZER INC-2007069924

PATIENT
  Age: 15 Year
  Sex: Male

DRUGS (2)
  1. GENOTROPIN [Suspect]
     Dosage: DAILY DOSE:.6MG
     Route: 058
  2. DRUG, UNSPECIFIED [Concomitant]

REACTIONS (1)
  - CONVULSION [None]
